FAERS Safety Report 5508049-2 (Version None)
Quarter: 2007Q4

REPORT INFORMATION
  Report Type: 
  Country: None (occurrence: None)
  Receive Date: 20071106
  Receipt Date: 20071029
  Transmission Date: 20080405
  Serious: Yes (Other)
  Sender: FDA-Public Use
  Company Number: US-PFIZER INC-2007091494

PATIENT
  Sex: Female
  Weight: 94.3 kg

DRUGS (8)
  1. DETROL LA [Suspect]
     Indication: POLLAKIURIA
     Dates: start: 20071025, end: 20071025
  2. DETROL LA [Suspect]
     Indication: MICTURITION URGENCY
  3. ALBUTEROL [Concomitant]
  4. FORADIL [Concomitant]
  5. ACETYLSALICYLIC ACID SRT [Concomitant]
  6. FEMARA [Concomitant]
  7. AVALIDE [Concomitant]
  8. VITAMINS [Concomitant]

REACTIONS (3)
  - MICTURITION URGENCY [None]
  - URINARY RETENTION [None]
  - WEIGHT INCREASED [None]
